FAERS Safety Report 4624383-2 (Version None)
Quarter: 2005Q1

REPORT INFORMATION
  Report Type: 
  Country: None (occurrence: None)
  Receive Date: 20050330
  Receipt Date: 20050330
  Transmission Date: 20050727
  Serious: Yes (Life-Threatening, Hospitalization)
  Sender: FDA-Public Use
  Company Number: None

PATIENT
  Age: 62 Year
  Sex: Female

DRUGS (1)
  1. OMNIPAQUE 140 [Suspect]
     Indication: COMPUTERISED TOMOGRAM
     Dosage: 150 ML ONCE INTRAVENOUS
     Route: 042
     Dates: start: 20041113, end: 20041113

REACTIONS (5)
  - CONTRAST MEDIA REACTION [None]
  - CRACKLES LUNG [None]
  - DIZZINESS [None]
  - DYSPNOEA [None]
  - THROAT TIGHTNESS [None]
